FAERS Safety Report 8516130-9 (Version None)
Quarter: 2012Q3

REPORT INFORMATION
  Report Type: 
  Country: None (occurrence: None)
  Receive Date: 20120717
  Receipt Date: 20120621
  Transmission Date: 20120928
  Serious: No
  Sender: FDA-Public Use
  Company Number: US-NOVEN-12US004829

PATIENT
  Sex: Male

DRUGS (2)
  1. DILAUDID [Concomitant]
     Indication: PAIN
     Dosage: QID
     Route: 048
  2. FENTANYL [Suspect]
     Indication: PAIN
     Dosage: 50 UG/HR Q 72HRS
     Route: 062

REACTIONS (2)
  - APPLICATION SITE SWELLING [None]
  - DRUG ADMINISTRATION ERROR [None]
